FAERS Safety Report 7540608-8 (Version None)
Quarter: 2011Q2

REPORT INFORMATION
  Report Type: 
  Country: None (occurrence: None)
  Receive Date: 20110610
  Receipt Date: 20110603
  Transmission Date: 20111010
  Serious: Yes (Hospitalization)
  Sender: FDA-Public Use
  Company Number: DE-TEVA-285169GER

PATIENT
  Sex: Female

DRUGS (1)
  1. COPAXONE [Suspect]
     Indication: MULTIPLE SCLEROSIS
     Dosage: 20 MILLIGRAM;
     Route: 058
     Dates: start: 20020101

REACTIONS (9)
  - HYPOAESTHESIA [None]
  - ABDOMINAL ADHESIONS [None]
  - OSTEOPOROSIS [None]
  - SYNCOPE [None]
  - PAIN [None]
  - TINNITUS [None]
  - VISUAL IMPAIRMENT [None]
  - HAEMATOMA [None]
  - BALANCE DISORDER [None]
